FAERS Safety Report 10698802 (Version 1)
Quarter: 2015Q1

REPORT INFORMATION
  Report Type: Spontaneous
  Country: None (occurrence: ZA)
  Receive Date: 20150108
  Receipt Date: 20150108
  Transmission Date: 20150721
  Serious: Yes (Hospitalization)
  Sender: FDA-Public Use
  Company Number: PHHY2015ZA001049

PATIENT
  Age: 20 Year
  Sex: Female

DRUGS (2)
  1. RITALIN [Suspect]
     Active Substance: METHYLPHENIDATE HYDROCHLORIDE
     Indication: PRODUCT USED FOR UNKNOWN INDICATION
     Dosage: UNK
     Route: 065
  2. RITALIN [Suspect]
     Active Substance: METHYLPHENIDATE HYDROCHLORIDE
     Dosage: 1 DF, BID (IN THE MORNING AT 08: 00 HOURS AND ANOTHER ONE AT AROUND 13: 30 HOURS IN THE AFTERNOON)
     Route: 065

REACTIONS (3)
  - Disturbance in attention [Unknown]
  - Anxiety [Unknown]
  - Palpitations [Unknown]
